FAERS Safety Report 5447159-5 (Version None)
Quarter: 2007Q3

REPORT INFORMATION
  Report Type: 
  Country: None (occurrence: None)
  Receive Date: 20070910
  Receipt Date: 20070830
  Transmission Date: 20080115
  Serious: Yes (Other)
  Sender: FDA-Public Use
  Company Number: PHBS2007NZ14620

PATIENT
  Sex: Male

DRUGS (2)
  1. CLOZARIL [Suspect]
     Dosage: 425 MG/DAY
     Dates: start: 20050401, end: 20070801
  2. CLOZARIL [Suspect]
     Dates: start: 20070801

REACTIONS (5)
  - ANXIETY [None]
  - DYSPHAGIA [None]
  - MALAISE [None]
  - MUSCLE TIGHTNESS [None]
  - OESOPHAGEAL DISORDER [None]
